FAERS Safety Report 6444118-0 (Version None)
Quarter: 2009Q4

REPORT INFORMATION
  Report Type: 
  Country: None (occurrence: None)
  Receive Date: 20091118
  Receipt Date: 20091112
  Transmission Date: 20100525
  Serious: Yes (Hospitalization)
  Sender: FDA-Public Use
  Company Number: US-JNJFOC-20091103961

PATIENT
  Age: 35 Year
  Sex: Male

DRUGS (2)
  1. AMRIX [Suspect]
     Indication: MUSCLE SPASMS
     Dosage: FOR 4 DAYS
  2. ZOMEPIRAC [Concomitant]

REACTIONS (1)
  - BIPOLAR I DISORDER [None]
